FAERS Safety Report 22043371 (Version 2)
Quarter: 2023Q2

REPORT INFORMATION
  Report Type: Spontaneous
  Country: US (occurrence: US)
  Receive Date: 20230228
  Receipt Date: 20230510
  Transmission Date: 20230721
  Serious: No
  Sender: FDA-Public Use
  Company Number: US-BRISTOL-MYERS SQUIBB COMPANY-2023-028314

PATIENT
  Age: 82 Year
  Sex: Female
  Weight: 76.66 kg

DRUGS (1)
  1. REVLIMID [Suspect]
     Active Substance: LENALIDOMIDE
     Indication: Plasma cell myeloma
     Dosage: FREQ: 14 DAYS ON AND 14 DAYS OFF
     Route: 048

REACTIONS (4)
  - Fatigue [Unknown]
  - Malaise [Unknown]
  - Off label use [Unknown]
  - Constipation [Recovering/Resolving]
